FAERS Safety Report 22839897 (Version 5)
Quarter: 2023Q4

REPORT INFORMATION
  Report Type: Report from Study
  Country: US (occurrence: US)
  Receive Date: 20230818
  Receipt Date: 20231030
  Transmission Date: 20240109
  Serious: Yes (Hospitalization)
  Sender: FDA-Public Use
  Company Number: US-PFIZER INC-PV202300139409

PATIENT
  Age: 47 Year
  Sex: Female
  Weight: 92.5 kg

DRUGS (7)
  1. DOXORUBICIN HYDROCHLORIDE [Suspect]
     Active Substance: DOXORUBICIN HYDROCHLORIDE
     Indication: Leiomyosarcoma
     Dosage: 120.6 MG (60 MG/M2), DAY 1 OF EACH 21 DAYS CYCLE FOR A MAXIMUM OF 6 CYCLES
     Route: 042
     Dates: start: 20230418, end: 20230801
  2. INVESTIGATIONAL PRODUCT [Suspect]
     Active Substance: INVESTIGATIONAL PRODUCT
     Indication: Leiomyosarcoma
     Dosage: 92.1 MG, DAY 1 AND DAY 8 OF EACH 21 DAYS CYCLE (CYCLE 1-6)
     Route: 042
     Dates: start: 20230418, end: 20230801
  3. UDENYCA [Concomitant]
     Active Substance: PEGFILGRASTIM-CBQV
     Indication: Prophylaxis
     Dosage: 6 MG, Q CYCLE, INJECTABLE
     Route: 058
     Dates: start: 20230418, end: 20230801
  4. ONDANSETRON [Concomitant]
     Active Substance: ONDANSETRON
     Indication: Nausea
     Dosage: 16 MG, Q CYCLE; INJECTABLE
     Route: 042
     Dates: start: 20230418, end: 20230801
  5. ONDANSETRON [Concomitant]
     Active Substance: ONDANSETRON
     Indication: Prophylaxis of nausea and vomiting
     Dosage: 8 MG, 2X/DAY
     Route: 048
     Dates: start: 20230516
  6. GRANIX [Concomitant]
     Active Substance: TBO-FILGRASTIM
     Indication: Neutropenia
     Dosage: 480 UG, DAILY; INJECTABLE
     Route: 058
     Dates: start: 20230721, end: 20230726
  7. ZINECARD [Concomitant]
     Active Substance: DEXRAZOXANE HYDROCHLORIDE
     Indication: Cardiovascular event prophylaxis
     Dosage: 1206 MG, Q DAY 1 OF DOXORUBICIN CYCLE; INJECTABLE
     Route: 042
     Dates: start: 20230711, end: 20230801

REACTIONS (1)
  - Febrile neutropenia [Recovered/Resolved]

NARRATIVE: CASE EVENT DATE: 20230807
